FAERS Safety Report 9016865 (Version 2)
Quarter: 2013Q1

REPORT INFORMATION
  Report Type: Spontaneous
  Country: GR (occurrence: GR)
  Receive Date: 20130117
  Receipt Date: 20130205
  Transmission Date: 20140127
  Serious: Yes (Hospitalization)
  Sender: FDA-Public Use
  Company Number: GR-ABBOTT-13P-066-1034591-00

PATIENT
  Age: 51 None
  Sex: Female
  Weight: 80 kg

DRUGS (5)
  1. HUMIRA [Suspect]
     Indication: RHEUMATOID ARTHRITIS
     Route: 058
     Dates: end: 201206
  2. METHOTREXATE [Concomitant]
     Indication: RHEUMATOID ARTHRITIS
  3. FILICINE [Concomitant]
     Indication: PRODUCT USED FOR UNKNOWN INDICATION
  4. PLAQUENIL [Concomitant]
     Indication: PRODUCT USED FOR UNKNOWN INDICATION
  5. LIPITOR [Concomitant]
     Indication: PRODUCT USED FOR UNKNOWN INDICATION

REACTIONS (10)
  - Gait disturbance [Unknown]
  - B-cell lymphoma [Not Recovered/Not Resolved]
  - Back pain [Unknown]
  - Sciatica [Unknown]
  - Red blood cell sedimentation rate increased [Unknown]
  - CSF immunoglobulin increased [Unknown]
  - CSF immunoglobulin increased [Unknown]
  - Alpha-2 macroglobulin increased [Unknown]
  - Albumin CSF increased [Unknown]
  - Protein total increased [Unknown]
